FAERS Safety Report 12465044 (Version 1)
Quarter: 2016Q2

REPORT INFORMATION
  Report Type: Spontaneous
  Country: JP (occurrence: JP)
  Receive Date: 20160614
  Receipt Date: 20160614
  Transmission Date: 20160815
  Serious: Yes (Death, Other)
  Sender: FDA-Public Use
  Company Number: PHJP1900JP002551

PATIENT
  Age: 47 Year
  Sex: Female

DRUGS (8)
  1. MINOMYCIN [Concomitant]
     Active Substance: MINOCYCLINE HYDROCHLORIDE
     Indication: PUSTULAR PSORIASIS
     Dosage: 200 MG, QD
     Route: 048
     Dates: start: 19941205, end: 19941209
  2. PREDONINE [Suspect]
     Active Substance: PREDNISOLONE\PREDNISOLONE ACETATE\PREDNISOLONE SODIUM SUCCINATE
     Indication: PUSTULAR PSORIASIS
     Route: 048
     Dates: start: 19911215, end: 19941212
  3. VONAFEC [Concomitant]
     Active Substance: DICLOFENAC SODIUM
     Indication: PUSTULAR PSORIASIS
     Dosage: 150 MG, QD
     Route: 065
     Dates: start: 19931018, end: 19941212
  4. SANDIMMUN [Suspect]
     Active Substance: CYCLOSPORINE
     Indication: PUSTULAR PSORIASIS
     Dosage: 150 MG, QD
     Route: 048
     Dates: start: 19920826, end: 19941212
  5. SOLU-CORTEF [Suspect]
     Active Substance: HYDROCORTISONE SODIUM SUCCINATE
     Indication: PUSTULAR PSORIASIS
     Dosage: 1000 MG, QD
     Route: 065
     Dates: start: 19941207, end: 19941209
  6. KERLONG [Concomitant]
     Active Substance: BETAXOLOL HYDROCHLORIDE
     Indication: HYPERTENSION
     Dosage: 10 MG, QD
     Route: 048
     Dates: start: 19941122, end: 19941211
  7. TANATRIL [Concomitant]
     Active Substance: IMIDAPRIL
     Indication: HYPERTENSION
     Dosage: 10 MG, QD
     Route: 048
     Dates: start: 19941122, end: 19941211
  8. CALSLOT//MANIDIPINE HYDROCHLORIDE [Concomitant]
     Indication: HYPERTENSION
     Dosage: 20 MG, QD
     Route: 048
     Dates: start: 19941122, end: 19941211

REACTIONS (1)
  - Sepsis [Fatal]
